FAERS Safety Report 14020531 (Version 2)
Quarter: 2017Q4

REPORT INFORMATION
  Report Type: Report from Study
  Country: ZA (occurrence: ZA)
  Receive Date: 20170928
  Receipt Date: 20171027
  Transmission Date: 20180321
  Serious: Yes (Hospitalization)
  Sender: FDA-Public Use
  Company Number: ZA-ASTRAZENECA-2017SE98229

PATIENT
  Sex: Female

DRUGS (8)
  1. ASTHAVENT ECO [Concomitant]
     Active Substance: ALBUTEROL
     Dosage: 200 DOSE 100 MCG
  2. AMLOC [Concomitant]
     Dosage: 5.0MG UNKNOWN
  3. NEULIN SA [Concomitant]
     Active Substance: THEOPHYLLINE
     Dosage: 250.0MG UNKNOWN
  4. SYMBICORD [Suspect]
     Active Substance: BUDESONIDE\FORMOTEROL
     Dosage: 106/4.5 MCG, UNKNOWN UNKNOWN
     Route: 055
  5. HUMALOG MIX KWIKPEN [Concomitant]
     Dosage: 25
  6. SIMVASTATIN. [Concomitant]
     Active Substance: SIMVASTATIN
     Dosage: 10.0MG UNKNOWN
  7. LISINOPRIL. [Concomitant]
     Active Substance: LISINOPRIL
     Dosage: 20.0MG UNKNOWN
  8. GLUCOPHAGE XR [Concomitant]
     Active Substance: METFORMIN HYDROCHLORIDE
     Dosage: 1000.0MG UNKNOWN

REACTIONS (1)
  - Pulmonary embolism [Recovering/Resolving]
